FAERS Safety Report 14284266 (Version 3)
Quarter: 2019Q2

REPORT INFORMATION
  Report Type: Spontaneous
  Country: FR (occurrence: FR)
  Receive Date: 20171214
  Receipt Date: 20190416
  Transmission Date: 20190711
  Serious: Yes (Hospitalization, Other)
  Sender: FDA-Public Use
  Company Number: FR-SUN PHARMACEUTICAL INDUSTRIES LTD-2017RR-156868

PATIENT
  Age: 60 Year
  Sex: Female

DRUGS (6)
  1. BIOTIN [Interacting]
     Active Substance: BIOTIN
     Indication: RELAPSING-REMITTING MULTIPLE SCLEROSIS
     Dosage: 100 MILLIGRAM, TID
     Route: 048
     Dates: start: 2016, end: 2016
  2. BACLOFEN. [Suspect]
     Active Substance: BACLOFEN
     Indication: RELAPSING-REMITTING MULTIPLE SCLEROSIS
     Dosage: 70 MILLIGRAM, DAILY
     Route: 065
  3. BACLOFEN. [Interacting]
     Active Substance: BACLOFEN
     Dosage: 30 MILLIGRAM, DAILY
     Route: 065
  4. DAL (DALFAMPRIDINE) [Interacting]
     Active Substance: DALFAMPRIDINE
     Indication: RELAPSING-REMITTING MULTIPLE SCLEROSIS
     Dosage: UNK, BID
     Route: 065
     Dates: start: 2013
  5. OXYBUTININ [Interacting]
     Active Substance: OXYBUTYNIN
     Indication: RELAPSING-REMITTING MULTIPLE SCLEROSIS
     Dosage: UNK
     Route: 065
  6. NITROFURANTOIN. [Concomitant]
     Active Substance: NITROFURANTOIN
     Indication: RELAPSING-REMITTING MULTIPLE SCLEROSIS
     Dosage: UNK
     Route: 065
     Dates: start: 2013

REACTIONS (3)
  - Drug interaction [Unknown]
  - Status epilepticus [Unknown]
  - Off label use [Unknown]
